FAERS Safety Report 25355447 (Version 1)
Quarter: 2025Q2

REPORT INFORMATION
  Report Type: Spontaneous
  Country: IT (occurrence: IT)
  Receive Date: 20250524
  Receipt Date: 20250524
  Transmission Date: 20250717
  Serious: Yes (Other)
  Sender: SANDOZ
  Company Number: None

PATIENT
  Age: 46 Year
  Sex: Female

DRUGS (1)
  1. HYRIMOZ [Suspect]
     Active Substance: ADALIMUMAB-ADAZ
     Indication: Psoriatic arthropathy
     Dosage: HYRIMOZ*ADALIMUMAB 40 MG SOLUTION FOR  INJECTION FOR SUBCUTANEOUS USE, PREFILLED  PENS. DOSAGE: 40 M
     Route: 058
     Dates: start: 202501, end: 202501

REACTIONS (2)
  - Hypertensive crisis [Recovering/Resolving]
  - Erythema [Recovered/Resolved]

NARRATIVE: CASE EVENT DATE: 20250101
